FAERS Safety Report 17964422 (Version 31)
Quarter: 2025Q1

REPORT INFORMATION
  Report Type: Report from Study
  Country: US (occurrence: US)
  Receive Date: 20200630
  Receipt Date: 20250213
  Transmission Date: 20250409
  Serious: Yes (Other)
  Sender: TAKEDA
  Company Number: US-SHIRE-US202021007

PATIENT
  Age: 74 Year
  Sex: Female
  Weight: 66 kg

DRUGS (32)
  1. HUMAN IMMUNOGLOBULIN G [Suspect]
     Active Substance: HUMAN IMMUNOGLOBULIN G
     Indication: Immunodeficiency common variable
  2. HUMAN IMMUNOGLOBULIN G [Suspect]
     Active Substance: HUMAN IMMUNOGLOBULIN G
     Indication: Congenital hypogammaglobulinaemia
  3. HUMAN IMMUNOGLOBULIN G [Suspect]
     Active Substance: HUMAN IMMUNOGLOBULIN G
  4. HUMAN IMMUNOGLOBULIN G [Suspect]
     Active Substance: HUMAN IMMUNOGLOBULIN G
  5. HUMAN IMMUNOGLOBULIN G [Suspect]
     Active Substance: HUMAN IMMUNOGLOBULIN G
     Dosage: 14 GRAM, 1/WEEK
     Dates: start: 20181222
  6. HUMAN IMMUNOGLOBULIN G [Suspect]
     Active Substance: HUMAN IMMUNOGLOBULIN G
  7. ACETAMINOPHEN [Concomitant]
     Active Substance: ACETAMINOPHEN
  8. DEXTROSE [Concomitant]
     Active Substance: DEXTROSE MONOHYDRATE
  9. ZOLPIDEM TARTRATE [Concomitant]
     Active Substance: ZOLPIDEM TARTRATE
  10. SODIUM CHLORIDE [Concomitant]
     Active Substance: SODIUM CHLORIDE
  11. SODIUM CHLORIDE [Concomitant]
     Active Substance: SODIUM CHLORIDE
  12. PREDNISONE [Concomitant]
     Active Substance: PREDNISONE
  13. CLARITIN [Concomitant]
     Active Substance: LORATADINE
  14. EPINEPHRINE [Concomitant]
     Active Substance: EPINEPHRINE
  15. LISINOPRIL AND HYDROCHLOROTHIAZIDE [Concomitant]
     Active Substance: HYDROCHLOROTHIAZIDE\LISINOPRIL
  16. NASACORT [Concomitant]
     Active Substance: TRIAMCINOLONE ACETONIDE
  17. CODEINE GUAIFENESIN [Concomitant]
     Active Substance: CODEINE PHOSPHATE\GUAIFENESIN
  18. Moisture eyes [Concomitant]
  19. XYLOMETAZOLINE HYDROCHLORIDE [Concomitant]
     Active Substance: XYLOMETAZOLINE HYDROCHLORIDE
  20. IMODIUM A-D [Concomitant]
     Active Substance: LOPERAMIDE HYDROCHLORIDE
  21. ZOLOFT [Concomitant]
     Active Substance: SERTRALINE HYDROCHLORIDE
  22. LUTEIN [Concomitant]
     Active Substance: LUTEIN
  23. LEVOTHYROXINE [Concomitant]
     Active Substance: LEVOTHYROXINE
  24. OMEPRAZOLE [Concomitant]
     Active Substance: OMEPRAZOLE
  25. IRBESARTAN [Concomitant]
     Active Substance: IRBESARTAN
  26. ALBUTEROL [Concomitant]
     Active Substance: ALBUTEROL
     Indication: Wheezing
  27. LANOLIN [Concomitant]
     Active Substance: LANOLIN
  28. NEILMED SINUS RINSE [Concomitant]
     Active Substance: SODIUM BICARBONATE\SODIUM CHLORIDE
  29. LANSOPRAZOLE [Concomitant]
     Active Substance: LANSOPRAZOLE
  30. HYDROCHLOROTHIAZIDE\IRBESARTAN [Concomitant]
     Active Substance: HYDROCHLOROTHIAZIDE\IRBESARTAN
  31. TYLENOL EXTRA STRENGTH [Concomitant]
     Active Substance: ACETAMINOPHEN
  32. SIMETHICONE (DIMETHICONE) [Concomitant]
     Active Substance: DIMETHICONE

REACTIONS (39)
  - Basal cell carcinoma [Recovering/Resolving]
  - Cataract [Unknown]
  - Squamous cell carcinoma of skin [Unknown]
  - Complicated appendicitis [Unknown]
  - Muscle strain [Unknown]
  - Rosacea [Recovering/Resolving]
  - Fall [Unknown]
  - Eye contusion [Unknown]
  - Nasal septum deviation [Unknown]
  - Umbilical hernia [Unknown]
  - Nasal turbinate hypertrophy [Unknown]
  - COVID-19 [Unknown]
  - Road traffic accident [Unknown]
  - Dental caries [Unknown]
  - Anal incontinence [Unknown]
  - Gastrooesophageal reflux disease [Unknown]
  - Injection site extravasation [Unknown]
  - Cyst [Unknown]
  - Oral herpes [Unknown]
  - Arthritis [Unknown]
  - Musculoskeletal chest pain [Unknown]
  - Dyspnoea exertional [Unknown]
  - Nasopharyngitis [Unknown]
  - Sinusitis [Unknown]
  - Abdominal discomfort [Unknown]
  - Epistaxis [Unknown]
  - Pain [Unknown]
  - Contusion [Unknown]
  - Swelling [Unknown]
  - Anxiety [Unknown]
  - Lymphadenopathy [Unknown]
  - Hypotension [Unknown]
  - Cough [Not Recovered/Not Resolved]
  - Hypertension [Unknown]
  - Migraine [Recovered/Resolved]
  - Headache [Unknown]
  - Abdominal pain upper [Unknown]
  - Diarrhoea [Unknown]
  - Pyrexia [Recovered/Resolved]

NARRATIVE: CASE EVENT DATE: 20201106
